FAERS Safety Report 22181139 (Version 5)
Quarter: 2023Q2

REPORT INFORMATION
  Report Type: Report from Study
  Country: PT (occurrence: PT)
  Receive Date: 20230406
  Receipt Date: 20230627
  Transmission Date: 20230721
  Serious: Yes (Other)
  Sender: FDA-Public Use
  Company Number: PT-002147023-NVSC2023PT078100

PATIENT
  Age: 73 Year
  Sex: Male

DRUGS (2)
  1. BEOVU [Suspect]
     Active Substance: BROLUCIZUMAB-DBLL
     Indication: Neovascular age-related macular degeneration
     Dosage: 6 MG, EVERY 6 WEEKS
     Route: 031
     Dates: start: 20221018
  2. ASPIRIN [Concomitant]
     Active Substance: ASPIRIN
     Indication: Diabetic retinopathy
     Dosage: 100 MG, QD
     Route: 065
     Dates: end: 20230216

REACTIONS (4)
  - Hyphaema [Recovered/Resolved with Sequelae]
  - Blindness transient [Recovered/Resolved]
  - Eyelid oedema [Unknown]
  - Ciliary body haemorrhage [Unknown]

NARRATIVE: CASE EVENT DATE: 20230215
